FAERS Safety Report 4733946-5 (Version None)
Quarter: 2005Q3

REPORT INFORMATION
  Report Type: 
  Country: None (occurrence: None)
  Receive Date: 20050725
  Receipt Date: 20050502
  Transmission Date: 20060218
  Serious: No
  Sender: FDA-Public Use
  Company Number: 2005SP000482

PATIENT
  Age: 82 Year
  Sex: Male

DRUGS (6)
  1. LUNESTA [Suspect]
     Dosage: 2 MG;HS;ORAL
     Route: 048
     Dates: start: 20050425
  2. REMERON [Concomitant]
  3. KLONOPIN [Concomitant]
  4. REMERON [Concomitant]
  5. KLONOPIN [Concomitant]
  6. AMBIEN [Concomitant]

REACTIONS (2)
  - DRUG INEFFECTIVE [None]
  - MIDDLE INSOMNIA [None]
